FAERS Safety Report 5406951-3 (Version None)
Quarter: 2007Q3

REPORT INFORMATION
  Report Type: 
  Country: None (occurrence: None)
  Receive Date: 20070803
  Receipt Date: 20070803
  Transmission Date: 20080115
  Serious: Yes (Other)
  Sender: FDA-Public Use
  Company Number: None

PATIENT
  Age: 40 Year
  Sex: Female
  Weight: 65.7716 kg

DRUGS (1)
  1. PREDNISONE [Suspect]
     Dosage: 20MG
     Dates: start: 20070720, end: 20070802

REACTIONS (5)
  - BODY TEMPERATURE FLUCTUATION [None]
  - DIZZINESS [None]
  - INSOMNIA [None]
  - MOOD SWINGS [None]
  - PRURITUS [None]
